FAERS Safety Report 20319924 (Version 2)
Quarter: 2022Q1

REPORT INFORMATION
  Report Type: Report from Study
  Country: US (occurrence: US)
  Receive Date: 20220111
  Receipt Date: 20220124
  Transmission Date: 20220424
  Serious: Yes (Death)
  Sender: FDA-Public Use
  Company Number: US-SUN PHARMACEUTICAL INDUSTRIES LTD-2021R1-322866

PATIENT
  Age: 10 Year
  Sex: Female

DRUGS (2)
  1. SOTALOL [Suspect]
     Active Substance: SOTALOL
     Indication: Heart disease congenital
     Dosage: 80 MILLIGRAM, BID (APPROX 120 MG/M2
     Route: 065
  2. SOTALOL [Suspect]
     Active Substance: SOTALOL
     Indication: Atrial tachycardia

REACTIONS (1)
  - Torsade de pointes [Fatal]
